FAERS Safety Report 15467002 (Version 1)
Quarter: 2018Q4

REPORT INFORMATION
  Report Type: Spontaneous
  Country: GR (occurrence: GR)
  Receive Date: 20181005
  Receipt Date: 20181005
  Transmission Date: 20190204
  Serious: Yes (Hospitalization)
  Sender: FDA-Public Use
  Company Number: GR-ROCHE-2193463

PATIENT
  Age: 37 Year
  Sex: Female

DRUGS (2)
  1. AVASTIN [Suspect]
     Active Substance: BEVACIZUMAB
     Indication: HEPATIC CANCER
     Route: 065
     Dates: start: 20180612, end: 201807
  2. 5-FLUOROURACIL [Concomitant]
     Active Substance: FLUOROURACIL
     Indication: HEPATIC CANCER
     Dosage: NO
     Route: 065
     Dates: start: 20180612, end: 201807

REACTIONS (1)
  - Gastric infection [Recovered/Resolved]
